FAERS Safety Report 10028361 (Version 3)
Quarter: 2014Q2

REPORT INFORMATION
  Report Type: Spontaneous
  Country: JP (occurrence: JP)
  Receive Date: 20140321
  Receipt Date: 20140424
  Transmission Date: 20141212
  Serious: Yes (Other)
  Sender: FDA-Public Use
  Company Number: PHHY2014JP033907

PATIENT
  Age: 65 Year
  Sex: Male
  Weight: 49 kg

DRUGS (14)
  1. NEORAL [Suspect]
     Indication: APLASTIC ANAEMIA
     Dosage: 250 MG, DAILY
     Route: 048
     Dates: start: 20140310
  2. NEORAL [Suspect]
     Dosage: 250 MG, DAILY
     Route: 048
     Dates: start: 20140316, end: 20140317
  3. NEORAL [Suspect]
     Dosage: 180 MG, DAILY
     Route: 048
     Dates: start: 20140318, end: 20140322
  4. NEORAL [Suspect]
     Dosage: 120 MG, DAILY
     Route: 048
     Dates: start: 20140323, end: 20140325
  5. NEORAL [Suspect]
     Dosage: 100 MG, DAILY
     Route: 048
     Dates: start: 20140326
  6. PREDNISOLONE [Suspect]
     Dosage: 50 MG, DAILY
     Route: 048
     Dates: start: 20140310
  7. ADRENAL [Concomitant]
     Dosage: UNK UKN, UNK
  8. EXJADE [Concomitant]
     Dosage: 500 MG, UNK
     Route: 048
     Dates: start: 20131113
  9. TAKEPRON [Concomitant]
     Dosage: 15 MG, UNK
     Route: 048
     Dates: start: 20130208
  10. BAKTAR [Concomitant]
     Dosage: 1 DF, UNK
     Route: 048
     Dates: start: 20130208
  11. DIFLUCAN [Concomitant]
     Dosage: 100 MG, UNK
     Route: 048
     Dates: start: 20130208
  12. CIPROXAN [Concomitant]
     Dosage: 300 MG, UNK
     Route: 048
     Dates: start: 20130111
  13. PRIMOBOLAN [Concomitant]
     Dosage: 20 MG, UNK
     Route: 048
     Dates: start: 20130520
  14. ZETBULIN [Concomitant]
     Dosage: 390 MG, UNK
     Route: 042
     Dates: start: 20140310, end: 20140314

REACTIONS (9)
  - Renal disorder [Unknown]
  - Creatinine renal clearance decreased [Unknown]
  - Blood creatinine increased [Recovered/Resolved]
  - Blood urea increased [Unknown]
  - Fluid retention [Recovering/Resolving]
  - Weight increased [Recovering/Resolving]
  - Red blood cell count decreased [Unknown]
  - Blood glucose increased [Unknown]
  - Immunosuppressant drug level increased [Unknown]
